FAERS Safety Report 12171024 (Version 1)
Quarter: 2016Q1

REPORT INFORMATION
  Report Type: Spontaneous
  Country: US (occurrence: None)
  Receive Date: 20160310
  Receipt Date: 20160310
  Transmission Date: 20160526
  Serious: No
  Sender: FDA-Public Use
  Company Number: None

PATIENT
  Age: 23 Year
  Sex: Male
  Weight: 54.43 kg

DRUGS (2)
  1. TRIAMCINOLONE ACETONIDE .1% 5G LYNE LABORATORIES, INC. [Suspect]
     Active Substance: TRIAMCINOLONE ACETONIDE
     Indication: APHTHOUS ULCER
     Dosage: FINGERTIP FULL AT BEDTIME APPLIED TO SURFACE OF MOUTH
     Dates: start: 20151111, end: 20151116
  2. TRIAMCINOLONE ACETONIDE .1% 5G LYNE LABORATORIES, INC. [Suspect]
     Active Substance: TRIAMCINOLONE ACETONIDE
     Indication: MOUTH ULCERATION
     Dosage: FINGERTIP FULL AT BEDTIME APPLIED TO SURFACE OF MOUTH
     Dates: start: 20151111, end: 20151116

REACTIONS (2)
  - Incorrect route of drug administration [None]
  - Raynaud^s phenomenon [None]

NARRATIVE: CASE EVENT DATE: 20151113
